FAERS Safety Report 4848222-X (Version None)
Quarter: 2005Q4

REPORT INFORMATION
  Report Type: 
  Country: None (occurrence: None)
  Receive Date: 20051206
  Receipt Date: 20051114
  Transmission Date: 20060501
  Serious: Yes (Other)
  Sender: FDA-Public Use
  Company Number: US200511001232

PATIENT
  Age: 78 Year
  Sex: Female

DRUGS (2)
  1. FORTEO [Suspect]
     Dosage: 20 UG, DAILY (1/D), UNK
     Dates: start: 20040601
  2. FORTEO PEN (250MCG/ML) [Concomitant]

REACTIONS (1)
  - OSTEITIS DEFORMANS [None]
